FAERS Safety Report 4403855-X (Version None)
Quarter: 2004Q3

REPORT INFORMATION
  Report Type: 
  Country: None (occurrence: None)
  Receive Date: 20040719
  Receipt Date: 20040705
  Transmission Date: 20050211
  Serious: Yes (Life-Threatening, Hospitalization)
  Sender: FDA-Public Use
  Company Number: 2004045131

PATIENT
  Age: 64 Year
  Sex: Female
  Weight: 68 kg

DRUGS (6)
  1. SORTIS (ATORVASTATIN) [Suspect]
     Indication: HYPERLIPIDAEMIA
     Dosage: 20 MG (20 MG, 1 IN 1 D), ORAL
     Route: 048
     Dates: end: 20040306
  2. INSULIN [Suspect]
     Indication: DIABETES MELLITUS
     Dosage: 34 I.U. (34 I.U., 3 IN 1 D), SUBCUTANEOUS
     Route: 058
  3. METFORMIN HCL [Suspect]
     Indication: DIABETES MELLITUS
     Dosage: 2000 MG (1000 MG, 2 IN 1 D), ORAL
     Route: 048
  4. INSULIN HUMAN INJECTION, ISOPHANE (INSULIN HUMAN INJECTION, ISOPHANE) [Suspect]
     Indication: DIABETES MELLITUS
     Dosage: 12 I.U. (12 I.U., 1 IN  1 D), SUBCUTANEOUS
     Route: 058
  5. ACETYLSALICYLIC ACID SRT [Concomitant]
  6. DIOVAN HCT [Concomitant]

REACTIONS (5)
  - BLOOD PRESSURE DIASTOLIC DECREASED [None]
  - DRUG INTERACTION [None]
  - HYPOGLYCAEMIA [None]
  - LOSS OF CONSCIOUSNESS [None]
  - SYNCOPE [None]
